FAERS Safety Report 4749265-7 (Version None)
Quarter: 2005Q3

REPORT INFORMATION
  Report Type: 
  Country: None (occurrence: None)
  Receive Date: 20050817
  Receipt Date: 20050809
  Transmission Date: 20060218
  Serious: Yes (Life-Threatening)
  Sender: FDA-Public Use
  Company Number: 2005FR-00226

PATIENT
  Age: 56 Year
  Sex: Female

DRUGS (11)
  1. ASPIRIN [Suspect]
     Dosage: 150MG, ORAL
     Route: 048
     Dates: end: 20050718
  2. TRAZODONE [Concomitant]
  3. PREDNISOLONE [Concomitant]
  4. FOLIC ACID [Concomitant]
  5. SIMVASTATIN [Concomitant]
  6. DILTIAZEM [Concomitant]
  7. BENDTROFLUAZIDE [Concomitant]
  8. FLUCLOXACILLIN [Concomitant]
  9. DESLORATADINE [Concomitant]
  10. METHOTREXATE [Concomitant]
  11. ESOMEPRAZOLE [Concomitant]

REACTIONS (1)
  - GASTROINTESTINAL HAEMORRHAGE [None]
